FAERS Safety Report 6686444-6 (Version None)
Quarter: 2010Q2

REPORT INFORMATION
  Report Type: 
  Country: None (occurrence: None)
  Receive Date: 20100419
  Receipt Date: 20100412
  Transmission Date: 20101027
  Serious: Yes (Other)
  Sender: FDA-Public Use
  Company Number: B0647540A

PATIENT
  Sex: Male

DRUGS (3)
  1. AVOLVE [Suspect]
     Indication: BENIGN PROSTATIC HYPERPLASIA
     Dosage: .5MG PER DAY
     Route: 048
     Dates: start: 20100403, end: 20100408
  2. FLIVAS [Concomitant]
     Dosage: 50MG PER DAY
     Route: 048
     Dates: start: 20100403, end: 20100408
  3. BASEN [Concomitant]
     Route: 048

REACTIONS (6)
  - ERYTHEMA [None]
  - LOCAL SWELLING [None]
  - OCULOMUCOCUTANEOUS SYNDROME [None]
  - OEDEMA PERIPHERAL [None]
  - RASH [None]
  - RASH PRURITIC [None]
